FAERS Safety Report 11783304 (Version 2)
Quarter: 2015Q4

REPORT INFORMATION
  Report Type: Spontaneous
  Country: DE (occurrence: DE)
  Receive Date: 20151127
  Receipt Date: 20151229
  Transmission Date: 20160305
  Serious: Yes (Hospitalization)
  Sender: FDA-Public Use
  Company Number: DE-ASTRAZENECA-2015SF17874

PATIENT
  Age: 34 Year
  Sex: Female
  Weight: 179.2 kg

DRUGS (3)
  1. FORXIGA [Suspect]
     Active Substance: DAPAGLIFLOZIN
     Route: 048
  2. ACTRAPID [Concomitant]
     Active Substance: INSULIN HUMAN
     Dosage: 80-80-100 I.U.
     Route: 058
  3. METOPROLOL [Concomitant]
     Active Substance: METOPROLOL
     Route: 048

REACTIONS (1)
  - Ketoacidosis [Recovered/Resolved]
